FAERS Safety Report 5625282-X (Version None)
Quarter: 2008Q1

REPORT INFORMATION
  Report Type: 
  Country: None (occurrence: None)
  Receive Date: 20080208
  Receipt Date: 20080130
  Transmission Date: 20080703
  Serious: Yes (Death, Other)
  Sender: FDA-Public Use
  Company Number: GXKR2008BR00736

PATIENT
  Age: 49 Year
  Sex: Male

DRUGS (1)
  1. PREDNISONE [Suspect]
     Indication: IDIOPATHIC THROMBOCYTOPENIC PURPURA
     Dosage: 1 MG/KG, QD

REACTIONS (9)
  - BLOOD PH INCREASED [None]
  - BLOOD THYROID STIMULATING HORMONE DECREASED [None]
  - CUSHINGOID [None]
  - HAEMOGLOBIN DECREASED [None]
  - HERPES VIRUS INFECTION [None]
  - NOCARDIOSIS [None]
  - PULMONARY CAVITATION [None]
  - RESPIRATORY FAILURE [None]
  - THYROIDITIS [None]
